FAERS Safety Report 10172900 (Version 1)
Quarter: 2014Q2

REPORT INFORMATION
  Report Type: Spontaneous
  Country: US (occurrence: US)
  Receive Date: 20140515
  Receipt Date: 20140515
  Transmission Date: 20141212
  Serious: No
  Sender: FDA-Public Use
  Company Number: US-B.I. PHARMACEUTICALS,INC./RIDGEFIELD-2014-BI-20164BP

PATIENT
  Age: 34 Year
  Sex: Male

DRUGS (2)
  1. ZANTAC (RANITIDINE HYDROCHLORIDE) [Suspect]
     Indication: DYSPEPSIA
     Dosage: ONE OR TWO TIMES PER DAY AS NEEDED
     Route: 048
     Dates: start: 20140331
  2. ZANTAC (RANITIDINE HYDROCHLORIDE) [Suspect]
     Indication: DYSPEPSIA
     Dosage: ONE OR TWO TIMES PER DAY AS NEEDED
     Route: 048
     Dates: start: 20140331

REACTIONS (1)
  - Headache [Not Recovered/Not Resolved]
